FAERS Safety Report 15860600 (Version 3)
Quarter: 2019Q1

REPORT INFORMATION
  Report Type: Spontaneous
  Country: PL (occurrence: PL)
  Receive Date: 20190123
  Receipt Date: 20190211
  Transmission Date: 20190417
  Serious: Yes (Death, Life-Threatening, Hospitalization, Other)
  Sender: FDA-Public Use
  Company Number: PL-STRIDES ARCOLAB LIMITED-2019SP000643

PATIENT
  Age: 31 Year
  Sex: Male

DRUGS (16)
  1. MYCOPHENOLATE MOFETIL. [Suspect]
     Active Substance: MYCOPHENOLATE MOFETIL
     Dosage: 3 G PER DAY
     Route: 065
     Dates: start: 2015, end: 2015
  2. TACROLIMUS. [Suspect]
     Active Substance: TACROLIMUS
     Dosage: UNK, PLASMA CONCERTATION WAS TARGETED TO BE APPROXIMATELY 5 NG/ML
     Route: 065
     Dates: start: 2015, end: 2015
  3. ANTITHYMOCYTE IMMUNOGLOBULIN [Suspect]
     Active Substance: THYMOCYTE IMMUNE GLOBULIN NOS
     Indication: IMMUNOSUPPRESSANT DRUG THERAPY
     Dosage: 800 MG IN TOTAL
     Route: 065
     Dates: start: 201411, end: 2014
  4. TACROLIMUS. [Suspect]
     Active Substance: TACROLIMUS
     Indication: LIVER TRANSPLANT
     Dosage: UNK, DOSE INCREASED
     Route: 065
     Dates: start: 2014
  5. PREDNISOLONE. [Suspect]
     Active Substance: PREDNISOLONE
     Indication: LIVER TRANSPLANT
     Dosage: UNK, DOSE INCREASED
     Route: 065
     Dates: start: 2014
  6. METHYLPREDNISOLONE. [Suspect]
     Active Substance: METHYLPREDNISOLONE
     Indication: IMMUNOSUPPRESSANT DRUG THERAPY
     Dosage: UNK
     Route: 042
     Dates: start: 201411
  7. METHYLPREDNISOLONE. [Suspect]
     Active Substance: METHYLPREDNISOLONE
     Dosage: 120 MG, UNKNOWN
     Route: 042
     Dates: start: 2015, end: 2015
  8. BORTEZOMIB. [Suspect]
     Active Substance: BORTEZOMIB
     Indication: TRANSPLANT REJECTION
     Dosage: 4 X 2 MG 1.25 MG/M^2 OF BODY SURFACE
     Route: 042
     Dates: start: 2014
  9. PREDNISOLONE. [Suspect]
     Active Substance: PREDNISOLONE
     Indication: IMMUNOSUPPRESSANT DRUG THERAPY
     Dosage: UNK
     Route: 065
     Dates: start: 201411
  10. MYCOPHENOLATE MOFETIL. [Suspect]
     Active Substance: MYCOPHENOLATE MOFETIL
     Indication: IMMUNOSUPPRESSANT DRUG THERAPY
     Dosage: UNK
     Route: 065
     Dates: start: 201411
  11. MYCOPHENOLATE MOFETIL. [Suspect]
     Active Substance: MYCOPHENOLATE MOFETIL
     Indication: LIVER TRANSPLANT
     Dosage: UNK, DOSE INCREASED
     Route: 065
     Dates: start: 2014
  12. MESALAZINE [Concomitant]
     Active Substance: MESALAMINE
     Indication: COLITIS ULCERATIVE
     Dosage: UNK
     Route: 065
     Dates: end: 2015
  13. TACROLIMUS. [Suspect]
     Active Substance: TACROLIMUS
     Indication: IMMUNOSUPPRESSANT DRUG THERAPY
     Dosage: UNK
     Route: 065
     Dates: start: 201411
  14. PREDNISOLONE. [Suspect]
     Active Substance: PREDNISOLONE
     Dosage: 30 MG, UNKNOWN
     Route: 065
     Dates: start: 201411, end: 20150101
  15. METHYLPREDNISOLONE. [Suspect]
     Active Substance: METHYLPREDNISOLONE
     Dosage: 2750 MG TOTAL
     Route: 042
     Dates: start: 201411
  16. METHYLPREDNISOLONE. [Suspect]
     Active Substance: METHYLPREDNISOLONE
     Dosage: 40 MG PER DAY
     Route: 042
     Dates: start: 2015

REACTIONS (13)
  - Pulmonary fibrosis [Not Recovered/Not Resolved]
  - Interstitial lung disease [Unknown]
  - Superinfection bacterial [Unknown]
  - Cytomegalovirus infection [Recovered/Resolved]
  - Upper respiratory tract infection [Unknown]
  - Dyspnoea at rest [Unknown]
  - Respiratory distress [Fatal]
  - Influenza like illness [Unknown]
  - Pancytopenia [Unknown]
  - Hypogammaglobulinaemia [Unknown]
  - Pneumocystis jirovecii infection [Unknown]
  - Tachypnoea [Unknown]
  - Liver transplant rejection [Recovered/Resolved]

NARRATIVE: CASE EVENT DATE: 201412
